FAERS Safety Report 7742073-4 (Version None)
Quarter: 2011Q3

REPORT INFORMATION
  Report Type: 
  Country: None (occurrence: None)
  Receive Date: 20110912
  Receipt Date: 20110905
  Transmission Date: 20111222
  Serious: Yes (Hospitalization, Other)
  Sender: FDA-Public Use
  Company Number: PHHY2011NL78848

PATIENT
  Sex: Female

DRUGS (3)
  1. ZOMETA [Suspect]
     Dosage: 4 MG/5ML, PER 28 DAYS
     Dates: start: 20110727
  2. ZOMETA [Suspect]
     Indication: BREAST CANCER METASTATIC
     Dosage: 4 MG/5ML, PER 28 DAYS
     Dates: start: 20101011
  3. ZOMETA [Suspect]
     Dosage: 4 MG/5ML, PER 28 DAYS
     Dates: start: 20110905

REACTIONS (1)
  - HIP FRACTURE [None]
